FAERS Safety Report 4856044-9 (Version None)
Quarter: 2005Q4

REPORT INFORMATION
  Report Type: 
  Country: None (occurrence: None)
  Receive Date: 20051216
  Receipt Date: 20051124
  Transmission Date: 20060501
  Serious: Yes (Hospitalization, Other)
  Sender: FDA-Public Use
  Company Number: EG-NOVOPROD-248837

PATIENT
  Age: 50 Year
  Sex: Male

DRUGS (4)
  1. NOVONORM [Suspect]
     Indication: DIABETES MELLITUS
     Dosage: 1 MG TWICE A DAY
     Dates: start: 20051003, end: 20051017
  2. INDERAL [Concomitant]
     Dosage: 20 MG, QD
     Route: 048
  3. LOSEC                                   /CAN/ [Concomitant]
     Dosage: 20 MG, QD
     Route: 048
     Dates: start: 20051003
  4. KONAKION [Concomitant]
     Dosage: 20 MG, QD
     Route: 048

REACTIONS (5)
  - ALANINE AMINOTRANSFERASE INCREASED [None]
  - ASPARTATE AMINOTRANSFERASE INCREASED [None]
  - HAEMATEMESIS [None]
  - HEPATIC ENZYME INCREASED [None]
  - MELAENA [None]
